FAERS Safety Report 22251034 (Version 1)
Quarter: 2023Q2

REPORT INFORMATION
  Report Type: Spontaneous
  Country: US (occurrence: US)
  Receive Date: 20230425
  Receipt Date: 20230425
  Transmission Date: 20230721
  Serious: No
  Sender: FDA-Public Use
  Company Number: US-BAYER-2023A056028

PATIENT
  Age: 56 Year
  Sex: Male

DRUGS (1)
  1. MIRALAX [Suspect]
     Active Substance: POLYETHYLENE GLYCOL 3350
     Indication: Colonoscopy
     Dosage: 238 G
     Route: 048
     Dates: start: 202304, end: 202304

REACTIONS (3)
  - Off label use [None]
  - Product dosage form issue [None]
  - Product physical issue [None]

NARRATIVE: CASE EVENT DATE: 20230401
